FAERS Safety Report 8468859-9 (Version None)
Quarter: 2012Q2

REPORT INFORMATION
  Report Type: 
  Country: None (occurrence: None)
  Receive Date: 20120626
  Receipt Date: 20100211
  Transmission Date: 20120825
  Serious: Yes (Other)
  Sender: FDA-Public Use
  Company Number: PT-ROCHE-1080964

PATIENT

DRUGS (3)
  1. EPIRUBICIN [Concomitant]
     Indication: GASTROOESOPHAGEAL CANCER
  2. XELODA [Suspect]
     Indication: GASTROOESOPHAGEAL CANCER
  3. OXALIPLATIN [Concomitant]
     Indication: GASTROOESOPHAGEAL CANCER

REACTIONS (1)
  - DISEASE PROGRESSION [None]
